FAERS Safety Report 9062381 (Version 1)
Quarter: 2013Q1

REPORT INFORMATION
  Report Type: Spontaneous
  Country: US (occurrence: US)
  Receive Date: 20130129
  Receipt Date: 20130129
  Transmission Date: 20140127
  Serious: Yes (Other)
  Sender: FDA-Public Use
  Company Number: PHEH2013US002037

PATIENT
  Sex: Female

DRUGS (4)
  1. GLEEVEC [Suspect]
  2. SIMVASTATIN [Suspect]
  3. ZETIA [Suspect]
  4. TASIGNA [Concomitant]
     Dosage: 800 MG, UNK

REACTIONS (3)
  - Drug hypersensitivity [Unknown]
  - Pleural effusion [Unknown]
  - Pericardial effusion [Unknown]
